FAERS Safety Report 9796617 (Version 2)
Quarter: 2014Q1

REPORT INFORMATION
  Report Type: Spontaneous
  Country: DE (occurrence: DE)
  Receive Date: 20140103
  Receipt Date: 20140103
  Transmission Date: 20141002
  Serious: Yes (Other)
  Sender: FDA-Public Use
  Company Number: DE-ASTRAZENECA-2013SE81755

PATIENT
  Age: 58 Year
  Sex: Female

DRUGS (15)
  1. QUETIAPIN [Suspect]
     Route: 048
     Dates: start: 20111108
  2. QUETIAPIN [Interacting]
     Route: 048
     Dates: start: 20130226
  3. QUILONORM RETARD [Interacting]
     Route: 048
  4. QUILONORM RETARD [Interacting]
     Route: 048
     Dates: start: 20130717
  5. QUILONORM RETARD [Interacting]
     Route: 048
     Dates: start: 20130821
  6. MIRTAZAPIN [Suspect]
     Route: 048
     Dates: start: 20111128, end: 20130818
  7. CLOMIPRAMIN [Suspect]
     Route: 048
  8. CLOMIPRAMIN [Suspect]
     Route: 048
     Dates: start: 20130608
  9. CLOMIPRAMIN [Suspect]
     Route: 048
     Dates: start: 20130820
  10. ATOSIL [Suspect]
     Route: 048
     Dates: start: 20130814, end: 20130815
  11. ATOSIL [Suspect]
     Route: 048
     Dates: start: 20130816
  12. ENALAPRIL [Concomitant]
     Route: 048
     Dates: start: 20110812
  13. AMLODIPIN [Concomitant]
     Route: 048
     Dates: start: 20110812
  14. L-THYROXIN [Concomitant]
     Route: 048
  15. LAFAMME [Concomitant]
     Route: 048
     Dates: start: 20130608

REACTIONS (3)
  - Drug interaction [Recovered/Resolved]
  - Delirium [Recovered/Resolved]
  - Tremor [Unknown]
